FAERS Safety Report 24449291 (Version 1)
Quarter: 2024Q4

REPORT INFORMATION
  Report Type: Spontaneous
  Country: PL (occurrence: PL)
  Receive Date: 20241017
  Receipt Date: 20241017
  Transmission Date: 20250115
  Serious: Yes (Other)
  Sender: RANBAXY
  Company Number: PL-URPL-DML-MLP.4401.1.827.2023

PATIENT
  Age: 75 Year
  Sex: Male
  Weight: 80 kg

DRUGS (1)
  1. GEMCITABINE [Suspect]
     Active Substance: GEMCITABINE
     Indication: Product used for unknown indication
     Dosage: 1500 MILLIGRAM, UNK
     Route: 040
     Dates: start: 20230727, end: 20230727

REACTIONS (2)
  - Oral fungal infection [Unknown]
  - Anaemia [Unknown]
